FAERS Safety Report 6166446-9 (Version None)
Quarter: 2009Q2

REPORT INFORMATION
  Report Type: 
  Country: None (occurrence: None)
  Receive Date: 20090424
  Receipt Date: 20090415
  Transmission Date: 20091009
  Serious: Yes (Hospitalization, Other)
  Sender: FDA-Public Use
  Company Number: US-AMGEN-QUU342946

PATIENT
  Sex: Male

DRUGS (14)
  1. NEULASTA [Suspect]
     Indication: CHEMOTHERAPY
     Route: 065
  2. MITOMYCIN [Concomitant]
  3. IRINOTECAN HCL [Concomitant]
  4. FLUOROURACIL [Concomitant]
  5. LEUCOVORIN CALCIUM [Concomitant]
  6. GEMCITABINE [Concomitant]
  7. INSULIN [Concomitant]
  8. OXALIPLATIN [Concomitant]
  9. TAXOTERE [Concomitant]
  10. FOLIC ACID [Concomitant]
  11. UNSPECIFIED ANTICOAGULANT [Concomitant]
  12. WELLBUTRIN [Concomitant]
  13. PROTONIX [Concomitant]
  14. LEXAPRO [Concomitant]

REACTIONS (3)
  - INFECTION [None]
  - PYREXIA [None]
  - WHITE BLOOD CELL COUNT INCREASED [None]
